FAERS Safety Report 4319097-2 (Version None)
Quarter: 2004Q1

REPORT INFORMATION
  Report Type: 
  Country: None (occurrence: None)
  Receive Date: 20040316
  Receipt Date: 20031217
  Transmission Date: 20041129
  Serious: No
  Sender: FDA-Public Use
  Company Number: F04200300200

PATIENT
  Age: 68 Year
  Sex: Male

DRUGS (4)
  1. UROXATRAL [Suspect]
     Indication: BENIGN PROSTATIC HYPERPLASIA
     Dosage: 10 MG OD
     Route: 048
     Dates: start: 20031029, end: 20031105
  2. PHYSIOTENS (MOXONIDINE) [Concomitant]
  3. BISOGAMMA (BISOPROLOL FUMARATE) [Concomitant]
  4. LASIX [Concomitant]

REACTIONS (1)
  - ANGINA PECTORIS [None]
